FAERS Safety Report 8810381 (Version 5)
Quarter: 2013Q2

REPORT INFORMATION
  Report Type: Spontaneous
  Country: US (occurrence: US)
  Receive Date: 20120926
  Receipt Date: 20130409
  Transmission Date: 20140414
  Serious: Yes (Hospitalization, Other)
  Sender: FDA-Public Use
  Company Number: US-009507513-1204USA00040

PATIENT
  Sex: Female

DRUGS (7)
  1. FOSAMAX [Suspect]
     Indication: OSTEOPOROSIS
     Dosage: 70 MG, UNK
     Route: 048
     Dates: start: 200201, end: 200812
  2. FOSAMAX [Suspect]
     Indication: OSTEOPENIA
  3. FOSAMAX [Suspect]
     Dosage: 70 MG, UNK
     Dates: start: 20080227, end: 20080922
  4. ALENDRONATE SODIUM [Suspect]
     Dosage: `70 MG, QW
     Route: 048
  5. VITAMINS (UNSPECIFIED) [Concomitant]
     Dosage: UNK
     Dates: start: 1990
  6. VITAMIN D (UNSPECIFIED) [Concomitant]
     Dosage: UNK
     Dates: start: 1990
  7. TEGRETOL [Concomitant]
     Indication: TRIGEMINAL NEURALGIA
     Dosage: UNK
     Dates: start: 1996

REACTIONS (24)
  - Femur fracture [Unknown]
  - Upper limb fracture [Unknown]
  - Hip fracture [Unknown]
  - Osteonecrosis [Unknown]
  - Hip arthroplasty [Unknown]
  - Hip arthroplasty [Unknown]
  - Open reduction of fracture [Unknown]
  - Medical device removal [Unknown]
  - Joint dislocation [Unknown]
  - Open reduction of fracture [Unknown]
  - Anxiety [Unknown]
  - International normalised ratio increased [Unknown]
  - Shoulder arthroplasty [Unknown]
  - Postoperative ileus [Recovered/Resolved]
  - Leukopenia [Unknown]
  - Fall [Unknown]
  - Tachycardia [Unknown]
  - Constipation [Unknown]
  - Diarrhoea [Unknown]
  - Fall [Unknown]
  - Hypertension [Unknown]
  - Atrial fibrillation [Unknown]
  - Limb asymmetry [Unknown]
  - Arthralgia [Unknown]
